FAERS Safety Report 25601360 (Version 1)
Quarter: 2025Q3

REPORT INFORMATION
  Report Type: Spontaneous
  Country: US (occurrence: US)
  Receive Date: 20250724
  Receipt Date: 20250724
  Transmission Date: 20251020
  Serious: No
  Sender: BAYER HEALTHCARE PHARMACEUTICALS INC.
  Company Number: US-BAYER-2025A098311

PATIENT
  Age: 28 Year
  Sex: Female

DRUGS (6)
  1. MIRENA [Suspect]
     Active Substance: LEVONORGESTREL
     Indication: Intrauterine contraception
     Dosage: 20?G/DAY
     Route: 015
     Dates: start: 202506
  2. MIRENA [Suspect]
     Active Substance: LEVONORGESTREL
     Indication: Heavy menstrual bleeding
  3. VICKS DAYQUIL [Concomitant]
     Active Substance: DEXTROMETHORPHAN HYDROBROMIDE\GUAIFENESIN
  4. CUTAQUIG [Concomitant]
     Active Substance: HUMAN IMMUNOGLOBULIN G
  5. LIDOCAINE [Concomitant]
     Active Substance: LIDOCAINE
  6. PRILOCAINE [Concomitant]
     Active Substance: PRILOCAINE

REACTIONS (4)
  - Illness [None]
  - Viral infection [None]
  - Oropharyngeal pain [None]
  - Fatigue [None]

NARRATIVE: CASE EVENT DATE: 20250101
